FAERS Safety Report 7522323-X (Version None)
Quarter: 2011Q2

REPORT INFORMATION
  Report Type: 
  Country: None (occurrence: None)
  Receive Date: 20110603
  Receipt Date: 20110523
  Transmission Date: 20111010
  Serious: Yes (Hospitalization)
  Sender: FDA-Public Use
  Company Number: PHHY2011DE45232

PATIENT
  Sex: Male

DRUGS (3)
  1. CELLCEPT [Suspect]
     Indication: RENAL TRANSPLANT
     Dosage: 5 MG
     Route: 048
  2. PREDNISONE [Suspect]
     Indication: RENAL TRANSPLANT
     Dosage: 5 MG, UP TO 30 MG IF NEEDED
     Route: 048
  3. SANDIMMUNE [Suspect]
     Indication: RENAL TRANSPLANT
     Dosage: 170 MG, QD
     Route: 048
     Dates: start: 20040601

REACTIONS (6)
  - ABNORMAL FAECES [None]
  - GASTROINTESTINAL DISORDER [None]
  - CROHN'S DISEASE [None]
  - AORTIC ANEURYSM [None]
  - PERIPHERAL ARTERY ANEURYSM [None]
  - BLOOD PRESSURE DIFFERENCE OF EXTREMITIES [None]
